FAERS Safety Report 5416938-2 (Version None)
Quarter: 2007Q3

REPORT INFORMATION
  Report Type: 
  Country: None (occurrence: None)
  Receive Date: 20070816
  Receipt Date: 20070807
  Transmission Date: 20080115
  Serious: Yes (Hospitalization)
  Sender: FDA-Public Use
  Company Number: US-JNJFOC-20070802431

PATIENT
  Age: 45 Year
  Sex: Female
  Weight: 89.81 kg

DRUGS (1)
  1. TYLENOL W/ CODEINE NO. 4 [Suspect]
     Indication: CARDIOMYOPATHY
     Route: 048

REACTIONS (1)
  - ANAPHYLACTIC REACTION [None]
